FAERS Safety Report 9947355 (Version 1)
Quarter: 2014Q1

REPORT INFORMATION
  Report Type: Report from Study
  Country: None (occurrence: US)
  Receive Date: 20140303
  Receipt Date: 20140303
  Transmission Date: 20141002
  Serious: Yes (Hospitalization)
  Sender: FDA-Public Use
  Company Number: US-ABBVIE-13P-163-1062320-00

PATIENT
  Age: 42 Year
  Sex: Female

DRUGS (4)
  1. HUMIRA [Suspect]
     Indication: CROHN^S DISEASE
     Dates: start: 201205, end: 201205
  2. HUMIRA [Suspect]
     Route: 058
     Dates: start: 201206, end: 201206
  3. HUMIRA [Suspect]
     Route: 058
     Dates: start: 201206, end: 201302
  4. HUMIRA [Suspect]
     Route: 058
     Dates: start: 20130312, end: 20130312

REACTIONS (1)
  - Crohn^s disease [Recovered/Resolved]
